FAERS Safety Report 9869302 (Version 2)
Quarter: 2014Q1

REPORT INFORMATION
  Report Type: Spontaneous
  Country: US (occurrence: US)
  Receive Date: 20140205
  Receipt Date: 20140205
  Transmission Date: 20141002
  Serious: Yes (Other)
  Sender: FDA-Public Use
  Company Number: US-BRISTOL-MYERS SQUIBB COMPANY-19861699

PATIENT
  Age: 65 Year
  Sex: Female
  Weight: 76.64 kg

DRUGS (4)
  1. ONGLYZA TABS 2.5 MG [Suspect]
     Indication: TYPE 2 DIABETES MELLITUS
     Dosage: TOTAL 60DOSES
     Route: 048
     Dates: start: 20130909, end: 20131109
  2. COZAAR [Suspect]
  3. VICODIN ES [Suspect]
     Dosage: 1DF:7.5/500?TABS?4-6 PRN
  4. WELLBUTRIN XL [Concomitant]

REACTIONS (2)
  - Age-related macular degeneration [Not Recovered/Not Resolved]
  - Alopecia [Unknown]
